FAERS Safety Report 7673539-3 (Version None)
Quarter: 2011Q3

REPORT INFORMATION
  Report Type: 
  Country: None (occurrence: None)
  Receive Date: 20110810
  Receipt Date: 20110809
  Transmission Date: 20111222
  Serious: Yes (Life-Threatening)
  Sender: FDA-Public Use
  Company Number: JP-B.I. PHARMACEUTICALS,INC./RIDGEFIELD-2011-BP-19378NB

PATIENT
  Age: 90 Year
  Sex: Female

DRUGS (6)
  1. PRADAXA [Suspect]
     Indication: ATRIAL FIBRILLATION
     Dosage: 300 MG
     Route: 065
     Dates: start: 20110720, end: 20110802
  2. AMLODIN OD [Concomitant]
     Dosage: 1 ANZ
     Route: 065
  3. SIGMART [Concomitant]
     Dosage: 3 ANZ
     Route: 065
  4. DIART [Concomitant]
     Dosage: 1 ANZ
     Route: 065
  5. LANIRAPID [Concomitant]
     Indication: HYPERTENSION
     Dosage: 1 ANZ
     Route: 065
  6. LANSOPRAZOLE-OD [Concomitant]
     Dosage: 1 ANZ
     Route: 065

REACTIONS (5)
  - ABDOMINAL PAIN UPPER [None]
  - CHEST PAIN [None]
  - FEELING COLD [None]
  - VOMITING [None]
  - PYREXIA [None]
